FAERS Safety Report 9806887 (Version 2)
Quarter: 2014Q1

REPORT INFORMATION
  Report Type: Spontaneous
  Country: US (occurrence: US)
  Receive Date: 20140109
  Receipt Date: 20140109
  Transmission Date: 20141002
  Serious: No
  Sender: FDA-Public Use
  Company Number: US-ABBVIE-13P-163-1071914-00

PATIENT
  Age: 62 Year
  Sex: Male

DRUGS (8)
  1. VICODIN [Suspect]
     Indication: PHANTOM PAIN
     Dosage: 7.5/750, 1-2 TABLETS
     Route: 048
  2. VICODIN [Suspect]
     Indication: PAIN
  3. ACCUPRIL [Suspect]
     Indication: HYPERTENSION
     Route: 048
  4. GABAPENTIN [Suspect]
     Indication: PAIN
  5. UNSPECIFIED MEDICATION [Suspect]
     Indication: PRODUCT USED FOR UNKNOWN INDICATION
     Dates: start: 2003
  6. TOPROL [Concomitant]
     Indication: HYPERTENSION
  7. LASIX [Concomitant]
     Indication: PRODUCT USED FOR UNKNOWN INDICATION
  8. DURERDIRO [Concomitant]
     Indication: PRODUCT USED FOR UNKNOWN INDICATION

REACTIONS (3)
  - Drug ineffective [Unknown]
  - Phantom pain [Not Recovered/Not Resolved]
  - Gangrene [Not Recovered/Not Resolved]
